FAERS Safety Report 9177733 (Version 1)
Quarter: 2013Q1

REPORT INFORMATION
  Report Type: Spontaneous
  Country: US (occurrence: US)
  Receive Date: 20130321
  Receipt Date: 20130321
  Transmission Date: 20140127
  Serious: Yes (Other)
  Sender: FDA-Public Use
  Company Number: US-PFIZER INC-2013091051

PATIENT
  Age: 42 Year
  Sex: Male
  Weight: 86.17 kg

DRUGS (5)
  1. NEURONTIN [Suspect]
     Indication: NERVE COMPRESSION
     Dosage: 800 MG, 1X/DAY
     Route: 048
  2. NEURONTIN [Suspect]
     Dosage: 800 MG, 3X/DAY
     Route: 048
  3. OXYCODONE [Concomitant]
     Indication: MUSCLE SPASMS
     Dosage: UNK
  4. SOMA [Concomitant]
     Indication: MUSCLE SPASMS
     Dosage: UNK
  5. LYRICA [Concomitant]
     Indication: NERVE COMPRESSION
     Dosage: UNK

REACTIONS (13)
  - Spinal fracture [Unknown]
  - Aphagia [Unknown]
  - Weight decreased [Unknown]
  - Fall [Unknown]
  - Intervertebral disc protrusion [Unknown]
  - Drug ineffective [Unknown]
  - Foreign body [Unknown]
  - Sensory loss [Unknown]
  - Insomnia [Unknown]
  - Body height decreased [Unknown]
  - Depression [Unknown]
  - Paraesthesia [Unknown]
  - Intentional drug misuse [Unknown]
